FAERS Safety Report 10793899 (Version 2)
Quarter: 2015Q2

REPORT INFORMATION
  Report Type: Report from Study
  Country: US (occurrence: US)
  Receive Date: 20150213
  Receipt Date: 20150526
  Transmission Date: 20150821
  Serious: Yes (Hospitalization, Other)
  Sender: FDA-Public Use
  Company Number: US-EMD SERONO-8009037

PATIENT
  Age: 9 Year
  Sex: Male
  Weight: 18 kg

DRUGS (3)
  1. SAIZEN [Suspect]
     Active Substance: SOMATROPIN
     Route: 058
  2. SAIZEN [Suspect]
     Active Substance: SOMATROPIN
     Indication: GROWTH RETARDATION
     Route: 058
     Dates: start: 20130105
  3. TRIAMINIC                          /00014501/ [Suspect]
     Active Substance: CHLORPHENIRAMINE MALEATE\PHENYLPROPANOLAMINE HYDROCHLORIDE
     Indication: COUGH

REACTIONS (9)
  - Febrile convulsion [Recovered/Resolved]
  - Cough [Unknown]
  - Nasal congestion [Unknown]
  - Pyrexia [Unknown]
  - Chest discomfort [Unknown]
  - Drug interaction [Unknown]
  - Urine ketone body present [Unknown]
  - Occult blood positive [Unknown]
  - Rhonchi [Unknown]

NARRATIVE: CASE EVENT DATE: 201501
